FAERS Safety Report 11327647 (Version 1)
Quarter: 2015Q3

REPORT INFORMATION
  Report Type: Spontaneous
  Country: US (occurrence: None)
  Receive Date: 20150730
  Receipt Date: 20150730
  Transmission Date: 20151125
  Serious: Yes (Hospitalization)
  Sender: FDA-Public Use
  Company Number: None

PATIENT
  Age: 76 Year
  Sex: Female

DRUGS (1)
  1. ISOVUE [Suspect]
     Active Substance: IOPAMIDOL
     Indication: COMPUTERISED TOMOGRAM
     Dosage: 100 ML  (2ML/SEC)  ONCE  IV
     Route: 042
     Dates: start: 20150210, end: 20150210

REACTIONS (3)
  - Sneezing [None]
  - Dyspnoea [None]
  - Paraesthesia [None]

NARRATIVE: CASE EVENT DATE: 20150210
